FAERS Safety Report 16439350 (Version 6)
Quarter: 2021Q4

REPORT INFORMATION
  Report Type: Spontaneous
  Country: US (occurrence: US)
  Receive Date: 20190617
  Receipt Date: 20211004
  Transmission Date: 20220303
  Serious: Yes (Hospitalization, Other)
  Sender: FDA-Public Use
  Company Number: US-GILEAD-2019-0413068

PATIENT
  Age: 37 Year
  Sex: Male
  Weight: 77.1 kg

DRUGS (66)
  1. TRUVADA [Suspect]
     Active Substance: EMTRICITABINE\TENOFOVIR DISOPROXIL FUMARATE
     Indication: Prophylaxis against HIV infection
     Dosage: UNK
     Route: 048
     Dates: start: 20160222, end: 20180907
  2. TRUVADA [Suspect]
     Active Substance: EMTRICITABINE\TENOFOVIR DISOPROXIL FUMARATE
     Dosage: UNK
     Route: 048
     Dates: start: 20160222, end: 20181012
  3. TRUVADA [Suspect]
     Active Substance: EMTRICITABINE\TENOFOVIR DISOPROXIL FUMARATE
     Dosage: UNK
     Route: 048
     Dates: start: 20190908, end: 20191008
  4. TRUVADA [Suspect]
     Active Substance: EMTRICITABINE\TENOFOVIR DISOPROXIL FUMARATE
     Dosage: UNK
     Route: 065
     Dates: start: 20190908, end: 20190913
  5. INSULIN NOS [Concomitant]
     Active Substance: INSULIN NOS
     Indication: Diabetes mellitus
     Dosage: UNK
     Dates: start: 1986, end: 20181028
  6. LEVOTHYROXINE [Concomitant]
     Active Substance: LEVOTHYROXINE
     Indication: Hypothyroidism
     Dosage: UNK
     Dates: start: 20150720, end: 20190130
  7. ELBASVIR [Concomitant]
     Active Substance: ELBASVIR
     Indication: Hepatitis C
     Dosage: UNK
     Dates: start: 201901, end: 201906
  8. GRAZOPREVIR [Concomitant]
     Active Substance: GRAZOPREVIR
     Indication: Hepatitis C
     Dosage: UNK
     Dates: start: 201901, end: 201906
  9. TYLENOL [Concomitant]
     Active Substance: ACETAMINOPHEN
     Dosage: UNK
     Dates: start: 20181106, end: 20200513
  10. AMOXICILLIN [Concomitant]
     Active Substance: AMOXICILLIN
     Dosage: UNK
     Dates: start: 20120521, end: 20190202
  11. ASPIRIN [Concomitant]
     Active Substance: ASPIRIN
     Dosage: UNK
     Dates: start: 20181031
  12. BACTRIM [Concomitant]
     Active Substance: SULFAMETHOXAZOLE\TRIMETHOPRIM
     Dosage: UNK
     Dates: start: 20110804, end: 20181210
  13. FLEET LAXATIVE [Concomitant]
  14. LASIX [Concomitant]
     Active Substance: FUROSEMIDE
     Dosage: UNK
  15. PANTOPRAZOLE [Concomitant]
     Active Substance: PANTOPRAZOLE
     Dosage: UNK
     Dates: start: 20181105
  16. TIVICAY [Concomitant]
     Active Substance: DOLUTEGRAVIR SODIUM
     Dosage: UNK
     Dates: start: 20190908, end: 20191008
  17. COZAAR [Concomitant]
     Active Substance: LOSARTAN POTASSIUM
     Dosage: UNK
     Dates: start: 20160505, end: 20180510
  18. NOVOLOG [Concomitant]
     Active Substance: INSULIN ASPART
     Dosage: UNK
     Dates: start: 20180214, end: 20180831
  19. LANTUS [Concomitant]
     Active Substance: INSULIN GLARGINE
     Dosage: UNK
     Dates: start: 20120304
  20. ALPRAZOLAM [Concomitant]
     Active Substance: ALPRAZOLAM
     Dosage: UNK
     Dates: start: 20190708, end: 201907
  21. SYNTHROID [Concomitant]
     Active Substance: LEVOTHYROXINE SODIUM
     Dosage: UNK
     Dates: start: 20150702
  22. IBUPROFEN [Concomitant]
     Active Substance: IBUPROFEN
  23. COREG [Concomitant]
     Active Substance: CARVEDILOL
     Dosage: UNK
     Dates: start: 20180101
  24. NORVASC [Concomitant]
     Active Substance: AMLODIPINE BESYLATE
     Dosage: UNK
     Dates: start: 20181106, end: 20190111
  25. MYFORTIC [Concomitant]
     Active Substance: MYCOPHENOLATE SODIUM
     Dosage: UNK
     Dates: start: 20181106
  26. PREDNISONE [Concomitant]
     Active Substance: PREDNISONE
     Dosage: UNK
     Dates: start: 20181105, end: 201811
  27. SENNA LEAF [Concomitant]
     Active Substance: SENNA LEAF
     Dosage: UNK
     Dates: start: 20181105, end: 201811
  28. EPIPEN [Concomitant]
     Active Substance: EPINEPHRINE
  29. HEPARIN [Concomitant]
     Active Substance: HEPARIN SODIUM
  30. METHYLPREDNISOLONE [Concomitant]
     Active Substance: METHYLPREDNISOLONE
  31. TETRACYCLINE [Concomitant]
     Active Substance: TETRACYCLINE
  32. VANCOMYCIN [Concomitant]
     Active Substance: VANCOMYCIN
  33. SENOKOT [Concomitant]
     Active Substance: SENNOSIDES
  34. CLONAZEPAM [Concomitant]
     Active Substance: CLONAZEPAM
  35. EDARBI [Concomitant]
     Active Substance: AZILSARTAN KAMEDOXOMIL
  36. TOUJEO [Concomitant]
     Active Substance: INSULIN GLARGINE
  37. OMNIPAQUE [Concomitant]
     Active Substance: IOHEXOL
  38. FLUTICASONE [Concomitant]
     Active Substance: FLUTICASONE
  39. DOXYCYCLINE HYCLATE [Concomitant]
     Active Substance: DOXYCYCLINE HYCLATE
  40. CIPROFLOXACIN [Concomitant]
     Active Substance: CIPROFLOXACIN
  41. MOXIFLOXACIN [Concomitant]
     Active Substance: MOXIFLOXACIN
  42. KETOROLAC [Concomitant]
     Active Substance: KETOROLAC TROMETHAMINE
  43. FLUCONAZOLE [Concomitant]
     Active Substance: FLUCONAZOLE
  44. VITAMINS NOS [Concomitant]
     Active Substance: VITAMINS
  45. FERROUS SULFATE [Concomitant]
     Active Substance: FERROUS SULFATE
  46. LIDOCAINE [Concomitant]
     Active Substance: LIDOCAINE
  47. MAGNESIUM OXIDE [Concomitant]
     Active Substance: MAGNESIUM OXIDE
  48. FEXOFENADINE [Concomitant]
     Active Substance: FEXOFENADINE HYDROCHLORIDE
  49. CYCLOBENZAPRINE [Concomitant]
     Active Substance: CYCLOBENZAPRINE
  50. DAPSONE [Concomitant]
     Active Substance: DAPSONE
  51. ALLEGRA-D [Concomitant]
     Active Substance: FEXOFENADINE HYDROCHLORIDE\PSEUDOEPHEDRINE HYDROCHLORIDE
  52. VALCYTE [Concomitant]
     Active Substance: VALGANCICLOVIR HYDROCHLORIDE
  53. KEFLEX [Concomitant]
     Active Substance: CEPHALEXIN
  54. PROAIR HFA [Concomitant]
     Active Substance: ALBUTEROL SULFATE
  55. DOCUSATE [Concomitant]
     Active Substance: DOCUSATE
  56. OXYCODONE [Concomitant]
     Active Substance: OXYCODONE
  57. NYSTATIN [Concomitant]
     Active Substance: NYSTATIN
  58. OXYBUTYNIN. [Concomitant]
     Active Substance: OXYBUTYNIN CHLORIDE
  59. FOLIC ACID [Concomitant]
     Active Substance: FOLIC ACID
  60. WAL FEX [Concomitant]
     Active Substance: FEXOFENADINE HYDROCHLORIDE
  61. WAL PHED D [Concomitant]
  62. EPOGEN [Concomitant]
     Active Substance: ERYTHROPOIETIN
  63. SINGULAIR [Concomitant]
     Active Substance: MONTELUKAST SODIUM
  64. ZEPATIER [Concomitant]
     Active Substance: ELBASVIR\GRAZOPREVIR
  65. ZOFRAN [Concomitant]
     Active Substance: ONDANSETRON HYDROCHLORIDE
  66. HYDROMORPHONE [Concomitant]
     Active Substance: HYDROMORPHONE

REACTIONS (13)
  - End stage renal disease [Recovered/Resolved]
  - Chronic kidney disease [Recovered/Resolved]
  - Complications of transplanted kidney [Unknown]
  - Immunodeficiency [Not Recovered/Not Resolved]
  - Renal failure [Unknown]
  - Emotional distress [Not Recovered/Not Resolved]
  - Anxiety [Unknown]
  - Anhedonia [Unknown]
  - Economic problem [Not Recovered/Not Resolved]
  - Osteopenia [Unknown]
  - Depression [Not Recovered/Not Resolved]
  - Pain [Not Recovered/Not Resolved]
  - Mobility decreased [Not Recovered/Not Resolved]

NARRATIVE: CASE EVENT DATE: 20180901
